FAERS Safety Report 7717580-0 (Version None)
Quarter: 2011Q3

REPORT INFORMATION
  Report Type: 
  Country: None (occurrence: None)
  Receive Date: 20110830
  Receipt Date: 20110826
  Transmission Date: 20111222
  Serious: Yes (Death, Hospitalization, Other)
  Sender: FDA-Public Use
  Company Number: JP-B.I. PHARMACEUTICALS,INC./RIDGEFIELD-2011-BP-19643NB

PATIENT
  Sex: Female
  Weight: 45 kg

DRUGS (7)
  1. DIART [Concomitant]
     Indication: CARDIAC FAILURE
     Dosage: 30 MG
     Route: 048
     Dates: start: 20110511, end: 20110807
  2. FAMOTIDINE D [Concomitant]
     Indication: GASTRIC ULCER
     Dosage: 40 MG
     Route: 048
     Dates: start: 20110418, end: 20110807
  3. PRADAXA [Suspect]
     Indication: ATRIAL FIBRILLATION
     Dosage: 220 MG
     Route: 048
     Dates: start: 20110618, end: 20110807
  4. EPLERENONE [Concomitant]
     Indication: HYPERTENSION
     Dosage: 25 MG
     Route: 048
     Dates: start: 20110424, end: 20110807
  5. PIMOBENDAN [Concomitant]
     Indication: CARDIAC FAILURE
     Dosage: 1.25 MG
     Route: 048
     Dates: start: 20110420, end: 20110807
  6. EQUA [Concomitant]
     Indication: DIABETES MELLITUS
     Dosage: 50 MG
     Route: 048
     Dates: start: 20110503, end: 20110807
  7. ALLOPURINOL [Concomitant]
     Indication: HYPERURICAEMIA
     Dosage: 100 MG
     Route: 048
     Dates: start: 20110615, end: 20110807

REACTIONS (3)
  - SUBDURAL HAEMATOMA [None]
  - RENAL FAILURE [None]
  - URINARY TRACT INFECTION [None]
